FAERS Safety Report 15834971 (Version 2)
Quarter: 2019Q2

REPORT INFORMATION
  Report Type: Spontaneous
  Country: US (occurrence: US)
  Receive Date: 20190116
  Receipt Date: 20190416
  Transmission Date: 20190711
  Serious: No
  Sender: FDA-Public Use
  Company Number: US-CHILTERN-US-2018-000204

PATIENT
  Age: 77 Year
  Sex: Male

DRUGS (5)
  1. ALPHAGAN P [Concomitant]
     Active Substance: BRIMONIDINE TARTRATE
     Dosage: UNK, BID
     Route: 047
     Dates: start: 20181017
  2. HYDROCODONE [Concomitant]
     Active Substance: HYDROCODONE
     Indication: CLUSTER HEADACHE
     Route: 048
  3. RHOPRESSA [Suspect]
     Active Substance: NETARSUDIL MESYLATE
     Indication: GLAUCOMA
     Dosage: 1 GTT EACH EYE AT NIGHT
     Route: 047
     Dates: start: 201808, end: 20181016
  4. TRAMADOL. [Concomitant]
     Active Substance: TRAMADOL
     Indication: CLUSTER HEADACHE
     Route: 048
  5. ALPHAGAN P [Concomitant]
     Active Substance: BRIMONIDINE TARTRATE
     Indication: GLAUCOMA
     Dosage: UNK, TID
     Route: 047
     Dates: start: 2018, end: 201808

REACTIONS (3)
  - Vision blurred [Not Recovered/Not Resolved]
  - Instillation site pain [Recovered/Resolved]
  - Conjunctival hyperaemia [Recovered/Resolved]

NARRATIVE: CASE EVENT DATE: 201808
